FAERS Safety Report 5005184-2 (Version None)
Quarter: 2006Q2

REPORT INFORMATION
  Report Type: 
  Country: None (occurrence: None)
  Receive Date: 20060518
  Receipt Date: 20060511
  Transmission Date: 20061013
  Serious: Yes (Other)
  Sender: FDA-Public Use
  Company Number: 2006AC00917

PATIENT
  Age: 65 Year
  Sex: Male

DRUGS (29)
  1. ESOMEPRAZOLE [Suspect]
     Indication: GASTROOESOPHAGEAL REFLUX DISEASE
     Dosage: TAKEN EVERY EVENING
     Route: 048
  2. ATAZANAVIR [Interacting]
     Indication: HIV INFECTION
     Dosage: TAKEN EVERY MORNING.
  3. ATAZANAVIR [Interacting]
     Dosage: INCREASED FOLLOWING RESULTS OF 12 HOUR PHARMACOKINETIC STUDY
  4. TENOFOVIR [Concomitant]
     Indication: HIV INFECTION
  5. RITONAVIR [Concomitant]
     Indication: HIV INFECTION
  6. RITONAVIR [Concomitant]
     Dosage: INCREASED FOLLOWING THE RESULTS OF 12 HOUR PHARMACOKINETIC STUDY
  7. STAVUDINE [Concomitant]
     Indication: HIV INFECTION
  8. STAVUDINE [Concomitant]
     Dosage: INCREASED FOLLOWING THE RESULTS OF 12 HOUR PHARMACOKINETIC STUDY
  9. TAMSULOSIN HCL [Concomitant]
  10. VITAMIN E [Concomitant]
  11. ASCORBIC ACID [Concomitant]
  12. AMINO ACID COMPLEX [Concomitant]
  13. GLUCOSAMINE [Concomitant]
  14. CHONDROITIN [Concomitant]
  15. COENZYME Q10 [Concomitant]
  16. OCUGUARD PLUS WITH LUTEIN [Concomitant]
  17. FISH OIL CAPSULES [Concomitant]
  18. GINKGO BILOBA [Concomitant]
  19. PROSTATE FORMULA [Concomitant]
  20. FOLIC ACID [Concomitant]
  21. VITAMIN B-12 [Concomitant]
  22. ZINC [Concomitant]
  23. SELENIUM SULFIDE [Concomitant]
  24. ASTRAGALUS SUPREME [Concomitant]
  25. MITAKE MUSHROOMS [Concomitant]
     Indication: GASTROOESOPHAGEAL REFLUX DISEASE
  26. MILK THISTLE [Concomitant]
     Indication: GASTROOESOPHAGEAL REFLUX DISEASE
  27. GINGER ROOT [Concomitant]
     Indication: GASTROOESOPHAGEAL REFLUX DISEASE
  28. PAPAYA ENZYME [Concomitant]
     Indication: GASTROOESOPHAGEAL REFLUX DISEASE
  29. ACID DEFENSE [Concomitant]
     Indication: GASTROOESOPHAGEAL REFLUX DISEASE

REACTIONS (2)
  - DRUG INTERACTION [None]
  - DRUG LEVEL DECREASED [None]
